FAERS Safety Report 17284527 (Version 1)
Quarter: 2020Q1

REPORT INFORMATION
  Report Type: Spontaneous
  Country: FR (occurrence: FR)
  Receive Date: 20200117
  Receipt Date: 20200117
  Transmission Date: 20200409
  Serious: Yes (Hospitalization, Disabling, Other)
  Sender: FDA-Public Use
  Company Number: FR-MYLANLABS-2019M1118574

PATIENT
  Age: 38 Year
  Sex: Female

DRUGS (9)
  1. CYPROTERONE MYLAN [Suspect]
     Active Substance: CYPROTERONE
     Indication: HIRSUTISM
     Dosage: UNK
     Dates: start: 2004, end: 2012
  2. CYPROTERONE MYLAN [Suspect]
     Active Substance: CYPROTERONE
     Dosage: 50 UNK
     Dates: start: 20160620
  3. OROMONE [Suspect]
     Active Substance: ESTRADIOL
     Indication: PRODUCT USED FOR UNKNOWN INDICATION
     Dosage: 1 MILLIGRAM
     Dates: start: 20160806, end: 20161229
  4. LANTUS [Suspect]
     Active Substance: INSULIN GLARGINE
     Indication: PRODUCT USED FOR UNKNOWN INDICATION
     Dosage: 100UI/ML
     Dates: start: 20160806, end: 20161229
  5. CYPROTERONE MYLAN [Suspect]
     Active Substance: CYPROTERONE
     Dosage: UNK
     Dates: start: 2013
  6. OROMONE [Suspect]
     Active Substance: ESTRADIOL
     Dosage: 1 MILLIGRAM
     Dates: start: 20160620
  7. NOVORAPID [Suspect]
     Active Substance: INSULIN ASPART
     Indication: PRODUCT USED FOR UNKNOWN INDICATION
     Dosage: 100U/ML
     Dates: start: 20160806, end: 20161229
  8. CYPROTERONE MYLAN [Suspect]
     Active Substance: CYPROTERONE
     Dosage: 50 MILLIGRAM
     Dates: start: 20160806, end: 20161229
  9. INSULIN [Concomitant]
     Active Substance: INSULIN NOS
     Indication: DIABETES MELLITUS
     Dosage: UNK

REACTIONS (1)
  - Meningioma [Unknown]
